FAERS Safety Report 8983807 (Version 1)
Quarter: 2012Q4

REPORT INFORMATION
  Report Type: 
  Country: US (occurrence: US)
  Receive Date: 20121224
  Receipt Date: 20121224
  Transmission Date: 20130627
  Serious: No
  Sender: FDA-Public Use
  Company Number: US-ASTRAZENECA-2012SE92418

PATIENT
  Age: 75 Year
  Sex: Female
  Weight: 30.4 kg

DRUGS (3)
  1. CRESTOR [Suspect]
     Route: 048
  2. CRESTOR [Suspect]
     Route: 048
  3. VITAMIN [Concomitant]

REACTIONS (5)
  - Blood pressure fluctuation [Unknown]
  - Heart rate abnormal [Unknown]
  - Sick sinus syndrome [Unknown]
  - Dizziness [Unknown]
  - Abdominal discomfort [Recovered/Resolved]
